FAERS Safety Report 9402453 (Version 1)
Quarter: 2013Q3

REPORT INFORMATION
  Report Type: Spontaneous
  Country: US (occurrence: None)
  Receive Date: 20130712
  Receipt Date: 20130712
  Transmission Date: 20140515
  Serious: Yes (Other)
  Sender: FDA-Public Use
  Company Number: None

PATIENT
  Age: 38 Year
  Sex: Male

DRUGS (5)
  1. ASACOL [Suspect]
     Indication: COLITIS ULCERATIVE
     Route: 048
  2. ZOLPIDEM [Concomitant]
  3. FINASTERIDE [Concomitant]
  4. DIPHENHYDRAMINE [Concomitant]
  5. ASACOL [Concomitant]

REACTIONS (11)
  - Flatulence [None]
  - Abdominal distension [None]
  - Abdominal pain [None]
  - Abnormal faeces [None]
  - Frequent bowel movements [None]
  - Defaecation urgency [None]
  - Mucous stools [None]
  - Pollakiuria [None]
  - Dysuria [None]
  - Diarrhoea [None]
  - Insomnia [None]
